FAERS Safety Report 11524154 (Version 1)
Quarter: 2015Q3

REPORT INFORMATION
  Report Type: Spontaneous
  Country: PR (occurrence: US)
  Receive Date: 20150918
  Receipt Date: 20150918
  Transmission Date: 20151125
  Serious: No
  Sender: FDA-Public Use
  Company Number: PR-BAYER-2015-418969

PATIENT
  Age: 59 Year
  Sex: Female

DRUGS (1)
  1. CLIMARA PRO [Suspect]
     Active Substance: ESTRADIOL\LEVONORGESTREL
     Indication: HOT FLUSH
     Dosage: 1 DF, OW
     Route: 062
     Dates: start: 20150819

REACTIONS (2)
  - Product adhesion issue [None]
  - Drug dose omission [None]

NARRATIVE: CASE EVENT DATE: 201508
